FAERS Safety Report 4731878-X (Version None)
Quarter: 2005Q2

REPORT INFORMATION
  Report Type: 
  Country: None (occurrence: None)
  Receive Date: 20050429
  Receipt Date: 20050302
  Transmission Date: 20051028
  Serious: No
  Sender: FDA-Public Use
  Company Number: 2005-0008051

PATIENT
  Age: 46 Year
  Sex: Male
  Weight: 58.514 kg

DRUGS (14)
  1. VIREAD [Suspect]
     Indication: HIV INFECTION
     Dosage: 300 MG, 1 IN 1 D, ORAL
     Route: 048
     Dates: start: 20050107, end: 20050217
  2. EMTRIVA [Suspect]
     Indication: HIV INFECTION
     Dosage: 200 MG
     Dates: start: 20040401
  3. ZIAGEN [Concomitant]
  4. RESCRIPTOR [Concomitant]
  5. AVANDIA [Concomitant]
  6. ASPIRIN [Concomitant]
  7. PLAVIX [Concomitant]
  8. NIACIN [Concomitant]
  9. FISH OIL (FISH OIL) (1000 MG) [Concomitant]
  10. FUROSEMIDE [Concomitant]
  11. ZYRTEC [Concomitant]
  12. ASTELIN NASAL SPRAY (AZELASTINE HYDROCHLORIDE) [Concomitant]
  13. FLONASE NASAL SPRAY (FLUTICASONE PROPIONATE) [Concomitant]
  14. LITHIUM (LITHIUM) (300 MG) [Concomitant]

REACTIONS (1)
  - PHOTOPSIA [None]
